FAERS Safety Report 9383886 (Version 1)
Quarter: 2013Q3

REPORT INFORMATION
  Report Type: Spontaneous
  Country: US (occurrence: US)
  Receive Date: 20130705
  Receipt Date: 20130705
  Transmission Date: 20140515
  Serious: No
  Sender: FDA-Public Use
  Company Number: US-B.I. PHARMACEUTICALS,INC./RIDGEFIELD-2013-BI-18783BP

PATIENT
  Age: 45 Year
  Sex: Female

DRUGS (10)
  1. COMBIVENT [Suspect]
     Indication: ASTHMA
     Dosage: STRENGTH: 20 MCG / 100 MCG; DAILY DOSE: 120 MCG/600 MCG
     Route: 055
     Dates: start: 20130620
  2. OXYCODONE [Concomitant]
     Indication: FIBROMYALGIA
     Dosage: 60 MG
     Route: 048
  3. LORTAB [Concomitant]
     Indication: INTERVERTEBRAL DISC DEGENERATION
     Dosage: STRENGTH: 10/500 MG; DAILY DOSE: 30/1500 MG
     Route: 048
  4. IBUPROFEN [Concomitant]
     Indication: DYSMENORRHOEA
     Route: 048
  5. SYMBICORT [Concomitant]
     Indication: ASTHMA
     Route: 055
  6. METFORMIN [Concomitant]
     Indication: DIABETES MELLITUS
     Dosage: 2000 MG
     Route: 048
  7. ROBAXIN [Concomitant]
     Indication: TENSION
     Dosage: 3000 MG
     Route: 048
  8. HYDROCHOROTHIAZIDE [Concomitant]
     Indication: FLUID RETENTION
     Dosage: 50 MG
     Route: 048
  9. GABAPENTIN [Concomitant]
     Indication: INTERVERTEBRAL DISC DEGENERATION
     Dosage: 200 MG
     Route: 048
  10. XANAX [Concomitant]
     Dosage: 1 MG
     Route: 048

REACTIONS (2)
  - Overdose [Not Recovered/Not Resolved]
  - Dyspnoea [Not Recovered/Not Resolved]
